FAERS Safety Report 24226281 (Version 1)
Quarter: 2024Q3

REPORT INFORMATION
  Report Type: Spontaneous
  Country: CN (occurrence: CN)
  Receive Date: 20240820
  Receipt Date: 20240820
  Transmission Date: 20241017
  Serious: Yes (Hospitalization, Other)
  Sender: AMGEN
  Company Number: CN-AMGEN-CHNSP2024161748

PATIENT
  Age: 69 Year
  Sex: Female

DRUGS (7)
  1. XGEVA [Suspect]
     Active Substance: DENOSUMAB
     Indication: Bone cancer
     Dosage: 120 MILLIGRAM (FREQUENCY:1)
     Route: 058
     Dates: start: 20240808, end: 20240808
  2. TRASTUZUMAB [Suspect]
     Active Substance: TRASTUZUMAB
     Indication: Breast cancer
     Dosage: 498 MILLIGRAM (FREQUENCY:1)
     Route: 042
     Dates: start: 20240731, end: 20240731
  3. PACLITAXEL [Suspect]
     Active Substance: PACLITAXEL
     Indication: Breast cancer
     Dosage: 200 MILLIGRAM (FREQUENCY:1)
     Route: 042
     Dates: start: 20240731, end: 20240731
  4. PACLITAXEL [Suspect]
     Active Substance: PACLITAXEL
     Dosage: 200 MILLIGRAM (FREQUENCY:1)
     Route: 042
     Dates: start: 20240807, end: 20240807
  5. SODIUM CHLORIDE [Concomitant]
     Active Substance: SODIUM CHLORIDE
     Dosage: 250 MILLILITER (FREQUENCY:1)
     Route: 042
     Dates: start: 20240731, end: 20240731
  6. SODIUM CHLORIDE [Concomitant]
     Active Substance: SODIUM CHLORIDE
     Dosage: 100 MILLILITER  (FREQUENCY:1)
     Route: 042
     Dates: start: 20240731, end: 20240731
  7. SODIUM CHLORIDE [Concomitant]
     Active Substance: SODIUM CHLORIDE
     Dosage: 100 MILLILITER  (FREQUENCY:1)
     Route: 042
     Dates: start: 20240807, end: 20240807

REACTIONS (1)
  - Myelosuppression [Recovering/Resolving]

NARRATIVE: CASE EVENT DATE: 20240809
